FAERS Safety Report 8710811 (Version 5)
Quarter: 2012Q4

REPORT INFORMATION
  Report Type: 
  Country: IE (occurrence: IE)
  Receive Date: 20120807
  Receipt Date: 20120921
  Transmission Date: 20130627
  Serious: Yes (Other)
  Sender: FDA-Public Use
  Company Number: PHFR2012IE004279

PATIENT
  Age: 35 Year
  Sex: Female

DRUGS (4)
  1. CLOZARIL [Suspect]
     Indication: SCHIZOPHRENIA
     Route: 048
     Dates: start: 20110705
  2. CLOZARIL [Suspect]
     Dosage: 525 mg, QD
     Route: 048
     Dates: start: 20120711, end: 20120801
  3. VENLAFAXINE [Concomitant]
     Dosage: 150 mg, UNK
     Route: 048
     Dates: start: 20110202
  4. LAMOTRIGINE [Concomitant]
     Dosage: 100 mg, BID
     Route: 048
     Dates: start: 20120704

REACTIONS (4)
  - Kidney infection [Recovered/Resolved]
  - Neutropenia [Recovered/Resolved]
  - Neutrophil count increased [Recovered/Resolved]
  - White blood cell count increased [Recovered/Resolved]
